FAERS Safety Report 8374867-9 (Version None)
Quarter: 2012Q2

REPORT INFORMATION
  Report Type: 
  Country: None (occurrence: None)
  Receive Date: 20120521
  Receipt Date: 20120122
  Transmission Date: 20120825
  Serious: No
  Sender: FDA-Public Use
  Company Number: US-ASTRAZENECA-2011SE79062

PATIENT
  Age: 71 Year
  Sex: Female

DRUGS (3)
  1. PRILOSEC OTC [Suspect]
     Route: 048
  2. WATER PILL [Concomitant]
     Dosage: UNKNOWN
  3. TRAMADOL HYDROCHLORIDE [Concomitant]
     Dosage: UNKNOWN

REACTIONS (3)
  - LACERATION [None]
  - INJURY [None]
  - PRODUCT PACKAGING ISSUE [None]
